FAERS Safety Report 25214465 (Version 1)
Quarter: 2025Q2

REPORT INFORMATION
  Report Type: Spontaneous
  Country: US (occurrence: None)
  Receive Date: 20250417
  Receipt Date: 20250417
  Transmission Date: 20250716
  Serious: No
  Sender: FDA-CTU
  Company Number: None

PATIENT
  Age: 19 Year
  Sex: Female

DRUGS (1)
  1. TESTOSTERONE GEL 1.62% [Suspect]
     Active Substance: TESTOSTERONE
     Indication: Trans-sexualism
     Dosage: OTHER QUANTITY : 2 PUMPS;?FREQUENCY : DAILY;?
     Route: 061

REACTIONS (2)
  - Urticaria [None]
  - Productive cough [None]
